FAERS Safety Report 6672571-6 (Version None)
Quarter: 2010Q2

REPORT INFORMATION
  Report Type: 
  Country: None (occurrence: None)
  Receive Date: 20100408
  Receipt Date: 20100330
  Transmission Date: 20101027
  Serious: Yes (Other)
  Sender: FDA-Public Use
  Company Number: US-JNJFOC-20100400292

PATIENT
  Age: 61 Year
  Sex: Female
  Weight: 104.33 kg

DRUGS (5)
  1. EXTRA STRENGTH TYLENOL PM [Suspect]
     Indication: INSOMNIA
     Route: 048
  2. LOVASTATIN [Concomitant]
     Indication: BLOOD CHOLESTEROL ABNORMAL
  3. METFORMIN [Concomitant]
     Indication: DIABETES MELLITUS
  4. VERAPAMIL [Concomitant]
     Indication: HYPERTENSION
  5. LISINOPRIL [Concomitant]
     Indication: HYPERTENSION
     Dosage: 10-12 .5 TABLETS, 2 DAILY

REACTIONS (2)
  - DRUG DEPENDENCE [None]
  - INSOMNIA [None]
